FAERS Safety Report 6239509-7 (Version None)
Quarter: 2009Q2

REPORT INFORMATION
  Report Type: 
  Country: None (occurrence: None)
  Receive Date: 20090618
  Receipt Date: 20090618
  Transmission Date: 20091009
  Serious: No
  Sender: FDA-Public Use
  Company Number: None

PATIENT
  Sex: Male
  Weight: 88.4514 kg

DRUGS (2)
  1. ZICAM COLD REMEDY NASAL GEL [Suspect]
     Indication: NASOPHARYNGITIS
     Dosage: AS DIRECTED PER PRODUCT LABEL NASAL
     Route: 045
     Dates: start: 20020102, end: 20020207
  2. ZICAM COLD REMDEDY NASAL [Suspect]
     Indication: NASOPHARYNGITIS
     Dosage: AS DIRECTED PER PRODUCT LABEL NASAL
     Route: 045
     Dates: start: 20040312, end: 20040317

REACTIONS (1)
  - HYPOSMIA [None]
